FAERS Safety Report 21263577 (Version 1)
Quarter: 2022Q3

REPORT INFORMATION
  Report Type: Report from Study
  Country: US (occurrence: US)
  Receive Date: 20220829
  Receipt Date: 20220829
  Transmission Date: 20221027
  Serious: Yes (Other)
  Sender: FDA-Public Use
  Company Number: US-BRISTOL-MYERS SQUIBB COMPANY-2022-091801

PATIENT
  Age: 77 Year
  Sex: Female
  Weight: 75.3 kg

DRUGS (10)
  1. REVLIMID [Suspect]
     Active Substance: LENALIDOMIDE
     Indication: Illness
     Dosage: TAKE 1 CAPSULE DAILY FOR 21 DAYS FOLLOW DAYS OFF
     Route: 048
     Dates: start: 20191104
  2. REVLIMID [Suspect]
     Active Substance: LENALIDOMIDE
     Indication: Plasma cell myeloma
  3. IRBESARTAN [Concomitant]
     Active Substance: IRBESARTAN
  4. ASPIRIN [Concomitant]
     Active Substance: ASPIRIN
  5. CARVEDILOL [Concomitant]
     Active Substance: CARVEDILOL
  6. FLUTICASONE PROPIONATE [Concomitant]
     Active Substance: FLUTICASONE PROPIONATE
  7. CLARITIN-D NOS [Concomitant]
     Active Substance: LORATADINE\PSEUDOEPHEDRINE SULFATE
  8. TYLENOL EXTRA STRENGTH [Concomitant]
     Active Substance: ACETAMINOPHEN
  9. BREO ELLIPTA [Concomitant]
     Active Substance: FLUTICASONE FUROATE\VILANTEROL TRIFENATATE
  10. ESTRADIOL [ESTRADIOL CIPIONATE] [Concomitant]

REACTIONS (6)
  - Contusion [Not Recovered/Not Resolved]
  - Back disorder [Unknown]
  - Arthropathy [Unknown]
  - Lower limb fracture [Unknown]
  - Spondylitis [Unknown]
  - Fall [Unknown]
